FAERS Safety Report 15290430 (Version 2)
Quarter: 2018Q3

REPORT INFORMATION
  Report Type: Report from Study
  Country: US (occurrence: US)
  Receive Date: 20180817
  Receipt Date: 20180927
  Transmission Date: 20181010
  Serious: Yes (Hospitalization, Other)
  Sender: FDA-Public Use
  Company Number: US-TEVA-2018-US-910487

PATIENT
  Age: 80 Year
  Sex: Female
  Weight: 63 kg

DRUGS (7)
  1. TYLENOL [Concomitant]
     Active Substance: ACETAMINOPHEN
  2. PACLITAXEL. [Suspect]
     Active Substance: PACLITAXEL
     Indication: PRODUCT USED FOR UNKNOWN INDICATION
     Route: 065
  3. ENZALUTAMIDE [Suspect]
     Active Substance: ENZALUTAMIDE
     Indication: ENDOMETRIAL ADENOCARCINOMA
     Dosage: 160 MILLIGRAM DAILY;
     Route: 048
     Dates: start: 20180327, end: 20180814
  4. CARBOPLATIN. [Suspect]
     Active Substance: CARBOPLATIN
     Indication: PRODUCT USED FOR UNKNOWN INDICATION
     Route: 065
  5. FOSAMAX [Concomitant]
     Active Substance: ALENDRONATE SODIUM
  6. LOTREL [Concomitant]
     Active Substance: AMLODIPINE BESYLATE\BENAZEPRIL HYDROCHLORIDE
  7. PRAVACHOL [Concomitant]
     Active Substance: PRAVASTATIN SODIUM

REACTIONS (8)
  - Fall [Unknown]
  - Head injury [Unknown]
  - Inappropriate antidiuretic hormone secretion [Recovered/Resolved]
  - Dizziness [Unknown]
  - Diarrhoea [Unknown]
  - Hyponatraemia [Unknown]
  - Dehydration [Unknown]
  - Syncope [Unknown]

NARRATIVE: CASE EVENT DATE: 20180504
